FAERS Safety Report 19273568 (Version 2)
Quarter: 2021Q3

REPORT INFORMATION
  Report Type: Spontaneous
  Country: US (occurrence: US)
  Receive Date: 20210519
  Receipt Date: 20210820
  Transmission Date: 20211014
  Serious: No
  Sender: FDA-Public Use
  Company Number: US-CELLTRION INC.-2021US005774

PATIENT

DRUGS (9)
  1. TRUXIMA [Suspect]
     Active Substance: RITUXIMAB-ABBS
     Indication: DERMATOMYOSITIS
     Dosage: 1000 MG ON DAY 1 AND DAY 15 EVERY 6 MONTHS (Q6M)
     Route: 042
     Dates: start: 20210427
  2. TRUXIMA [Suspect]
     Active Substance: RITUXIMAB-ABBS
     Indication: INTERSTITIAL LUNG DISEASE
     Dosage: PLANNED THERAPY: 11 MAY 2021, 1000 MG ON DAY 1 AND DAY 15 EVERY 6 MONTHS (Q6M)
     Route: 042
  3. FOLIC ACID. [Concomitant]
     Active Substance: FOLIC ACID
  4. OMEPRAZOLE. [Concomitant]
     Active Substance: OMEPRAZOLE
  5. PREDNISONE. [Concomitant]
     Active Substance: PREDNISONE
  6. VITAMIN D [Concomitant]
     Active Substance: VITAMIN D NOS
  7. TRIAMCINOLONE [Concomitant]
     Active Substance: TRIAMCINOLONE
  8. NIFEDIPINE. [Concomitant]
     Active Substance: NIFEDIPINE
  9. METHOTREXATE. [Concomitant]
     Active Substance: METHOTREXATE

REACTIONS (1)
  - Off label use [Unknown]
